FAERS Safety Report 17438309 (Version 1)
Quarter: 2020Q1

REPORT INFORMATION
  Report Type: Spontaneous
  Country: CN (occurrence: CN)
  Receive Date: 20200220
  Receipt Date: 20200220
  Transmission Date: 20200409
  Serious: Yes (Other)
  Sender: FDA-Public Use
  Company Number: CN-BAXTER-2020BAX003730

PATIENT
  Age: 44 Year
  Sex: Female
  Weight: 46 kg

DRUGS (12)
  1. 0.9% SODIUM CHLORIDE INJECTION [Suspect]
     Active Substance: SODIUM CHLORIDE
     Dosage: THIRD CHEMOTHERAPY; ENDOXAN 780 MG + NS 40 ML
     Route: 042
     Dates: start: 20191220, end: 20191220
  2. 0.9% SODIUM CHLORIDE INJECTION [Suspect]
     Active Substance: SODIUM CHLORIDE
     Dosage: THIRD CHEMOTHERAPY; TAISUODI 105 MG + NS 250 ML
     Route: 041
     Dates: start: 20191220, end: 20191220
  3. DOCETAXEL. [Suspect]
     Active Substance: DOCETAXEL
     Dosage: THIRD CHEMOTHERAPY; TAISUODI 105 MG + NS 250 ML
     Route: 041
     Dates: start: 20191220, end: 20191220
  4. 0.9% SODIUM CHLORIDE INJECTION [Suspect]
     Active Substance: SODIUM CHLORIDE
     Dosage: 1-2 CHEMOTHERAPY; TAISUODI + NS
     Route: 041
  5. 0.9% SODIUM CHLORIDE INJECTION [Suspect]
     Active Substance: SODIUM CHLORIDE
     Dosage: DOSE RE-INTRODUCED; TAISUODI + NS
     Route: 041
  6. DOCETAXEL. [Suspect]
     Active Substance: DOCETAXEL
     Indication: BREAST CANCER FEMALE
     Dosage: 1-2 CHEMOTHERAPY; TAISUODI + NS
     Route: 041
  7. DOCETAXEL. [Suspect]
     Active Substance: DOCETAXEL
     Dosage: DOSE RE-INTRODUCED; TAISUODI + NS
     Route: 041
  8. 0.9% SODIUM CHLORIDE INJECTION [Suspect]
     Active Substance: SODIUM CHLORIDE
     Dosage: DOSE RE-INTRODUCED; ENDOXAN + NS
     Route: 042
  9. ENDOXAN [Suspect]
     Active Substance: CYCLOPHOSPHAMIDE
     Dosage: THIRD CHEMOTHERAPY; ENDOXAN 780 MG + NS 40 ML
     Route: 042
     Dates: start: 20191220, end: 20191220
  10. ENDOXAN [Suspect]
     Active Substance: CYCLOPHOSPHAMIDE
     Dosage: DOSE RE-INTRODUCED; ENDOXAN + NS
     Route: 042
  11. ENDOXAN [Suspect]
     Active Substance: CYCLOPHOSPHAMIDE
     Indication: BREAST CANCER FEMALE
     Dosage: 1-2 CHEMOTHERAPY; ENDOXAN + NS (NORMAL SALINE)
     Route: 042
  12. 0.9% SODIUM CHLORIDE INJECTION [Suspect]
     Active Substance: SODIUM CHLORIDE
     Indication: MEDICATION DILUTION
     Dosage: 1-2 CHEMOTHERAPY; ENDOXAN + NS
     Route: 042

REACTIONS (2)
  - White blood cell count decreased [Recovered/Resolved]
  - Agranulocytosis [Recovered/Resolved]

NARRATIVE: CASE EVENT DATE: 20191226
